FAERS Safety Report 8576202-X (Version None)
Quarter: 2012Q3

REPORT INFORMATION
  Report Type: 
  Country: None (occurrence: None)
  Receive Date: 20120807
  Receipt Date: 20120726
  Transmission Date: 20120928
  Serious: Yes (Hospitalization)
  Sender: FDA-Public Use
  Company Number: US-ALEXION-A201201419

PATIENT
  Sex: Female
  Weight: 74.4 kg

DRUGS (20)
  1. SOLIRIS [Suspect]
     Indication: HAEMOLYTIC URAEMIC SYNDROME
     Dosage: 900 MG, QW
     Route: 042
     Dates: start: 20120626
  2. SOLIRIS [Suspect]
     Indication: TRANSPLANT REJECTION
  3. COREG [Concomitant]
     Indication: HYPERTENSION
     Dosage: 12.5 MG, BID
     Route: 048
  4. ARANESP [Concomitant]
     Indication: ANAEMIA
     Dosage: 200 MCG, QMONTH
     Route: 058
  5. LASIX [Concomitant]
     Indication: FLUID RETENTION
     Dosage: 40 MG, QD
     Route: 048
  6. CYCLOSPORINE [Concomitant]
     Indication: PROPHYLAXIS AGAINST TRANSPLANT REJECTION
     Dosage: 225 MG, BID
     Route: 048
  7. IRON [Concomitant]
     Indication: ANAEMIA
  8. PREDNISONE [Concomitant]
     Indication: PROPHYLAXIS AGAINST TRANSPLANT REJECTION
     Dosage: 5 MG, QD
     Route: 048
  9. IRON [Concomitant]
     Indication: MINERAL SUPPLEMENTATION
     Dosage: 150 MG, BID
     Route: 048
  10. VALCYTE [Concomitant]
     Indication: ANTIVIRAL PROPHYLAXIS
     Dosage: 450 MG, QD
     Route: 048
     Dates: start: 20120801
  11. AMLODIPINE [Concomitant]
     Indication: HYPERTENSION
     Dosage: 5 MG, QD
     Route: 048
  12. ASCORBIC ACID [Concomitant]
     Indication: SUPPLEMENTATION THERAPY
     Dosage: 500 MG, BID
     Route: 048
  13. VITAMIN D [Concomitant]
     Indication: SUPPLEMENTATION THERAPY
     Dosage: 1000 U, QD
     Route: 048
  14. FOLIC ACID [Concomitant]
     Indication: SUPPLEMENTATION THERAPY
     Dosage: 1 G, QD
     Route: 048
  15. VALCYTE [Concomitant]
     Indication: INFECTION PROPHYLAXIS
     Dosage: 450 MG TWICE A WEEK
     Route: 048
  16. PENTAMIDINE [Concomitant]
     Indication: ANTIFUNGAL PROPHYLAXIS
     Dosage: 300 ?G, QD
     Dates: start: 20120726
  17. BACTRIM [Suspect]
     Indication: ANTIFUNGAL PROPHYLAXIS
     Dosage: 400 MG / 60, QD
     Route: 048
     Dates: start: 20120608, end: 20120610
  18. MAGNESIUM OXIDE [Concomitant]
     Indication: MINERAL SUPPLEMENTATION
     Dosage: 400 MG, BID
     Route: 048
  19. CALCIUM CARBONATE [Concomitant]
     Indication: SUPPLEMENTATION THERAPY
     Dosage: 1 G X5, QD
     Route: 048
  20. MYFORTIC [Concomitant]
     Indication: PROPHYLAXIS AGAINST TRANSPLANT REJECTION
     Dosage: 720 MG, BID
     Route: 048

REACTIONS (2)
  - TOXICITY TO VARIOUS AGENTS [None]
  - ACUTE HEPATIC FAILURE [None]
